FAERS Safety Report 14762726 (Version 1)
Quarter: 2018Q2

REPORT INFORMATION
  Report Type: Spontaneous
  Country: PT (occurrence: PT)
  Receive Date: 20180416
  Receipt Date: 20180416
  Transmission Date: 20180711
  Serious: Yes (Hospitalization, Other)
  Sender: FDA-Public Use
  Company Number: PT-WEST-WARD PHARMACEUTICALS CORP.-PT-H14001-18-03016

PATIENT
  Age: 68 Year
  Sex: Male

DRUGS (1)
  1. ACIDO ZOLEDRONICO HIKMA [Suspect]
     Active Substance: ZOLEDRONIC ACID
     Indication: PROSTATE CANCER METASTATIC
     Dosage: 1 INTRAVENOUS ADMINISTRATION OF 4MG FOR 15 MINUTES, EVERY 4 WEEKS
     Route: 042
     Dates: start: 20150220, end: 20160401

REACTIONS (1)
  - Fanconi syndrome [Recovered/Resolved with Sequelae]

NARRATIVE: CASE EVENT DATE: 20160405
